FAERS Safety Report 9495005 (Version 1)
Quarter: 2013Q3

REPORT INFORMATION
  Report Type: Spontaneous
  Country: US (occurrence: None)
  Receive Date: 20130830
  Receipt Date: 20130830
  Transmission Date: 20140515
  Serious: No
  Sender: FDA-Public Use
  Company Number: None

PATIENT
  Age: 59 Year
  Sex: Female
  Weight: 142.88 kg

DRUGS (3)
  1. MONTELUKAST SODIUM [Suspect]
     Indication: ASTHMA
     Route: 048
     Dates: start: 20121011, end: 20130617
  2. MONTELUKAST SODIUM [Suspect]
     Indication: CHRONIC OBSTRUCTIVE PULMONARY DISEASE
     Route: 048
     Dates: start: 20121011, end: 20130617
  3. MONTELUKAST SODIUM [Suspect]
     Route: 048
     Dates: start: 20120618, end: 20130722

REACTIONS (2)
  - Drug ineffective [None]
  - Product substitution issue [None]
